FAERS Safety Report 22253804 (Version 1)
Quarter: 2023Q2

REPORT INFORMATION
  Report Type: Spontaneous
  Country: US (occurrence: None)
  Receive Date: 20230424
  Receipt Date: 20230424
  Transmission Date: 20230721
  Serious: No
  Sender: FDA-Public Use
  Company Number: None

PATIENT
  Age: 90 Year
  Sex: Female
  Weight: 85.73 kg

DRUGS (14)
  1. IBRANCE [Suspect]
     Active Substance: PALBOCICLIB
     Indication: Breast cancer female
     Route: 048
  2. ALLOPURINOL [Concomitant]
     Active Substance: ALLOPURINOL
  3. ATORVASTATIN [Concomitant]
     Active Substance: ATORVASTATIN
  4. DAPSONE [Concomitant]
     Active Substance: DAPSONE
  5. DOCUSATE [Concomitant]
     Active Substance: DOCUSATE
  6. DOCUSATE [Concomitant]
     Active Substance: DOCUSATE
  7. FASLODEX [Concomitant]
     Active Substance: FULVESTRANT
  8. LASIX [Concomitant]
     Active Substance: FUROSEMIDE
  9. LATANOPROST [Concomitant]
     Active Substance: LATANOPROST
  10. MECLIZINE [Concomitant]
     Active Substance: MECLIZINE HYDROCHLORIDE
  11. NORCO [Concomitant]
     Active Substance: ACETAMINOPHEN\HYDROCODONE BITARTRATE
  12. VITAMIN B12 [Concomitant]
     Active Substance: CYANOCOBALAMIN
  13. VITAMIN D3 [Concomitant]
     Active Substance: CHOLECALCIFEROL
  14. XARELTO [Concomitant]
     Active Substance: RIVAROXABAN

REACTIONS (2)
  - White blood cell count decreased [None]
  - Therapy interrupted [None]
